FAERS Safety Report 15643541 (Version 2)
Quarter: 2020Q3

REPORT INFORMATION
  Report Type: Spontaneous
  Country: HU (occurrence: HU)
  Receive Date: 20181121
  Receipt Date: 20181203
  Transmission Date: 20201104
  Serious: Yes (Other)
  Sender: FDA-Public Use
  Company Number: HU-PIRAMAL ENTERPRISES LIMITED-2018-PEL-003617

PATIENT

DRUGS (19)
  1. MIDAZOLAM HYDROCHLORIDE. [Suspect]
     Active Substance: MIDAZOLAM HYDROCHLORIDE
     Indication: PRODUCT USED FOR UNKNOWN INDICATION
     Dosage: 5 MG, UNK
     Route: 065
  2. PIPECURONIUM [Suspect]
     Active Substance: PIPECURONIUM
     Indication: PRODUCT USED FOR UNKNOWN INDICATION
     Dosage: 4 MG, UNK
     Route: 042
  3. HEPARIN SODIUM. [Suspect]
     Active Substance: HEPARIN SODIUM
     Indication: PRODUCT USED FOR UNKNOWN INDICATION
     Dosage: 10 IU, UNK
     Route: 065
  4. SEVOFLURANE PIRAMAL [Suspect]
     Active Substance: SEVOFLURANE
     Indication: PRODUCT USED FOR UNKNOWN INDICATION
     Dosage: 1.5?2.0 %
     Route: 065
  5. EPHEDRINE. [Suspect]
     Active Substance: EPHEDRINE
     Indication: PRODUCT USED FOR UNKNOWN INDICATION
     Dosage: 25 MG/H, UNK
     Route: 041
  6. HEPARIN SODIUM. [Suspect]
     Active Substance: HEPARIN SODIUM
     Dosage: 10 IU, UNK
     Route: 065
  7. PROTAMINE SULFATE. [Suspect]
     Active Substance: PROTAMINE SULFATE
     Indication: PRODUCT USED FOR UNKNOWN INDICATION
     Dosage: 200 MG, UNK
     Route: 065
  8. SUFENTANIL [Suspect]
     Active Substance: SUFENTANIL
     Indication: PRODUCT USED FOR UNKNOWN INDICATION
     Dosage: 10 UG, UNK
     Route: 065
  9. AMPICILLIN SODIUM. [Suspect]
     Active Substance: AMPICILLIN SODIUM
     Indication: PRODUCT USED FOR UNKNOWN INDICATION
     Dosage: 2 GRAM PER 4HRS
     Route: 065
  10. EPHEDRINE. [Suspect]
     Active Substance: EPHEDRINE
     Dosage: 5 MILLIGRAM, TID
     Route: 042
  11. EPHEDRINE. [Suspect]
     Active Substance: EPHEDRINE
     Dosage: 5 MILLIGRAM, 11 TIMES
     Route: 042
  12. DIGOXIN. [Suspect]
     Active Substance: DIGOXIN
     Indication: PRODUCT USED FOR UNKNOWN INDICATION
     Dosage: UNK
     Route: 065
  13. ENOXAPARIN [Suspect]
     Active Substance: ENOXAPARIN
     Indication: PRODUCT USED FOR UNKNOWN INDICATION
     Dosage: UNK
     Route: 065
  14. PANTOPRAZOLE [Suspect]
     Active Substance: PANTOPRAZOLE
     Indication: PRODUCT USED FOR UNKNOWN INDICATION
     Dosage: 40 MG, UNK
     Route: 042
  15. MIDAZOLAM HYDROCHLORIDE. [Suspect]
     Active Substance: MIDAZOLAM HYDROCHLORIDE
     Dosage: 7.5 MILLIGRAM, QD
     Route: 048
  16. PENAMECILLIN [Suspect]
     Active Substance: PENAMECILLIN
     Indication: ALPHA HAEMOLYTIC STREPTOCOCCAL INFECTION
     Dosage: UNK
     Route: 065
  17. ISOFLURANE. [Suspect]
     Active Substance: ISOFLURANE
     Indication: PRODUCT USED FOR UNKNOWN INDICATION
     Dosage: 0.5?1.0 %
     Route: 065
  18. PROPOFOL. [Suspect]
     Active Substance: PROPOFOL
     Indication: PRODUCT USED FOR UNKNOWN INDICATION
     Dosage: 2?1.5  ?G/ML
     Route: 041
  19. METOPROLOL. [Suspect]
     Active Substance: METOPROLOL
     Indication: PRODUCT USED FOR UNKNOWN INDICATION
     Dosage: UNK
     Route: 065

REACTIONS (13)
  - Hyperthyroidism [Unknown]
  - Anaemia [Unknown]
  - Cardiac valve abscess [Unknown]
  - Alpha haemolytic streptococcal infection [Unknown]
  - Dyspnoea [Unknown]
  - Hypokinesia [Unknown]
  - Fluid overload [Unknown]
  - Ejection fraction decreased [Recovered/Resolved]
  - Cardiac failure [Unknown]
  - Sinus tachycardia [Unknown]
  - Maternal exposure during pregnancy [Unknown]
  - Cardiac valve vegetation [Unknown]
  - Thyroid cyst [Unknown]
